FAERS Safety Report 9322645 (Version 2)
Quarter: 2013Q3

REPORT INFORMATION
  Report Type: Report from Study
  Country: US (occurrence: US)
  Receive Date: 20130531
  Receipt Date: 20130701
  Transmission Date: 20140515
  Serious: Yes (Hospitalization, Disabling)
  Sender: FDA-Public Use
  Company Number: US-US-EMD SERONO, INC.-7214418

PATIENT
  Age: 66 Year
  Sex: Female
  Weight: 86 kg

DRUGS (8)
  1. REBIF [Suspect]
     Indication: MULTIPLE SCLEROSIS
     Route: 058
     Dates: start: 20031111, end: 201208
  2. REBIF [Suspect]
     Route: 058
     Dates: end: 201211
  3. BACLOFEN [Concomitant]
     Indication: PRODUCT USED FOR UNKNOWN INDICATION
  4. ZANAFLEX [Concomitant]
     Indication: PRODUCT USED FOR UNKNOWN INDICATION
  5. LEXAPRO [Concomitant]
     Indication: PRODUCT USED FOR UNKNOWN INDICATION
  6. LIPITOR [Concomitant]
     Indication: PRODUCT USED FOR UNKNOWN INDICATION
  7. TEGRETOL [Concomitant]
     Indication: PRODUCT USED FOR UNKNOWN INDICATION
  8. ASPIRIN                            /00002701/ [Concomitant]
     Indication: PRODUCT USED FOR UNKNOWN INDICATION

REACTIONS (15)
  - Retroperitoneal haematoma [Recovering/Resolving]
  - Deep vein thrombosis [Unknown]
  - Femoral nerve palsy [Unknown]
  - Encephalopathy [Unknown]
  - Urinary tract infection [Recovering/Resolving]
  - Feeling abnormal [Unknown]
  - Chest pain [Recovering/Resolving]
  - Diarrhoea [Unknown]
  - Fall [Recovering/Resolving]
  - Decreased appetite [Unknown]
  - Multiple sclerosis relapse [Recovering/Resolving]
  - Hyperlipidaemia [Unknown]
  - Insomnia [Unknown]
  - Depression [Unknown]
  - Influenza like illness [Unknown]
